FAERS Safety Report 7603124-0 (Version None)
Quarter: 2011Q3

REPORT INFORMATION
  Report Type: 
  Country: None (occurrence: None)
  Receive Date: 20110711
  Receipt Date: 20110711
  Transmission Date: 20111222
  Serious: Yes (Hospitalization)
  Sender: FDA-Public Use
  Company Number: None

PATIENT
  Age: 90 Year
  Sex: Male
  Weight: 80 kg

DRUGS (1)
  1. PRADAXA [Suspect]
     Indication: ATRIAL FIBRILLATION
     Dosage: 150MG BID PO
     Route: 048

REACTIONS (7)
  - FATIGUE [None]
  - HAEMORRHAGE [None]
  - HYPERHIDROSIS [None]
  - ACUTE MYOCARDIAL INFARCTION [None]
  - MELAENA [None]
  - ANAEMIA [None]
  - SOMNOLENCE [None]
